FAERS Safety Report 9798874 (Version 2)
Quarter: 2014Q1

REPORT INFORMATION
  Report Type: Spontaneous
  Country: US (occurrence: US)
  Receive Date: 20140106
  Receipt Date: 20140106
  Transmission Date: 20141002
  Serious: No
  Sender: FDA-Public Use
  Company Number: US-GILEAD-2010-0033453

PATIENT
  Age: 81 Year
  Sex: Female

DRUGS (11)
  1. LETAIRIS [Suspect]
     Indication: PULMONARY ARTERIAL HYPERTENSION
     Route: 048
     Dates: start: 20090827, end: 20090913
  2. ASPIRIN [Concomitant]
  3. ATENOLOL [Concomitant]
  4. LANOXIN [Concomitant]
  5. ALTACE [Concomitant]
  6. COUMADIN [Concomitant]
  7. PLAVIX [Concomitant]
  8. LIPITOR [Concomitant]
  9. LEVOTHYROXINE [Concomitant]
  10. TRAZODONE [Concomitant]
  11. ZOLOFT [Concomitant]

REACTIONS (3)
  - Pain in extremity [Unknown]
  - Nasopharyngitis [Unknown]
  - Headache [Unknown]
